FAERS Safety Report 15478137 (Version 1)
Quarter: 2018Q4

REPORT INFORMATION
  Report Type: Spontaneous
  Country: US (occurrence: US)
  Receive Date: 20181002
  Receipt Date: 20181002
  Transmission Date: 20190205
  Serious: Yes (Life-Threatening)
  Sender: FDA-Public Use
  Company Number: None

PATIENT
  Age: 41 Year
  Weight: 108.41 kg

DRUGS (9)
  1. METFORMIN [Concomitant]
     Active Substance: METFORMIN HYDROCHLORIDE
  2. BRIMONIDINE TARTRATE. [Concomitant]
     Active Substance: BRIMONIDINE TARTRATE
  3. ALBUTEROL INH [Concomitant]
     Active Substance: ALBUTEROL
  4. DORZOLAMIDE\TIMLOL MALEATE [Concomitant]
  5. VICTOZA [Concomitant]
     Active Substance: LIRAGLUTIDE
  6. BASAGLAR [Suspect]
     Active Substance: INSULIN GLARGINE
     Indication: TYPE 2 DIABETES MELLITUS
     Route: 042
     Dates: start: 20180814, end: 20180817
  7. NOVOLOG [Concomitant]
     Active Substance: INSULIN ASPART
  8. LATANOPROST. [Concomitant]
     Active Substance: LATANOPROST
  9. LANTUS [Concomitant]
     Active Substance: INSULIN GLARGINE

REACTIONS (10)
  - Nausea [None]
  - Hypersensitivity [None]
  - Pharyngeal oedema [None]
  - Coordination abnormal [None]
  - Rash generalised [None]
  - Headache [None]
  - Vomiting [None]
  - Irritability [None]
  - Malaise [None]
  - Visual impairment [None]

NARRATIVE: CASE EVENT DATE: 20180817
